FAERS Safety Report 5044747-5 (Version None)
Quarter: 2006Q2

REPORT INFORMATION
  Report Type: 
  Country: None (occurrence: None)
  Receive Date: 20060601
  Receipt Date: 20060407
  Transmission Date: 20061013
  Serious: No
  Sender: FDA-Public Use
  Company Number: 2006-BP-02247BP

PATIENT
  Age: 73 Year
  Sex: Male
  Weight: 77.11 kg

DRUGS (17)
  1. SPIRIVA [Suspect]
     Indication: CHRONIC OBSTRUCTIVE PULMONARY DISEASE
     Dosage: 18 MG (18 MG QAM) IH
     Route: 055
     Dates: start: 20051101
  2. SPIRIVA [Suspect]
  3. STARLIX [Concomitant]
  4. AGGRENOX [Concomitant]
  5. FOLIC ACID [Concomitant]
  6. FUROSEMIDE [Concomitant]
  7. CLONIDINE [Concomitant]
  8. SULAR [Concomitant]
  9. GLBURIDE (GLIBENCLAMIDE) [Concomitant]
  10. TORPOL XL (METOPROLOL SUCCINATE) [Concomitant]
  11. PENICILLIN [Concomitant]
  12. ZOCOR [Concomitant]
  13. COMBIVENT [Concomitant]
  14. ASPIRIN [Concomitant]
  15. PRILOSEC [Concomitant]
  16. LORAZEPAM [Concomitant]
  17. AZMACORT [Concomitant]

REACTIONS (5)
  - AGEUSIA [None]
  - DRY MOUTH [None]
  - EPISTAXIS [None]
  - NASAL DRYNESS [None]
  - PRURITUS [None]
